FAERS Safety Report 16266391 (Version 1)
Quarter: 2019Q2

REPORT INFORMATION
  Report Type: Spontaneous
  Country: NL (occurrence: NL)
  Receive Date: 20190502
  Receipt Date: 20190502
  Transmission Date: 20190711
  Serious: Yes (Hospitalization)
  Sender: FDA-Public Use
  Company Number: NL-MYLANLABS-2019M1041962

PATIENT
  Age: 75 Year
  Sex: Male

DRUGS (10)
  1. QUETIAPINE                         /01270902/ [Concomitant]
     Active Substance: QUETIAPINE FUMARATE
     Dosage: 1 KEER PER DAG 1 STUK(S)
     Route: 048
  2. ACETYLSALICYLZUUR [Concomitant]
     Active Substance: ASPIRIN
     Dosage: 1 KEER PER DAG 1 STUK(S)
     Route: 048
  3. DIVISUN [Concomitant]
     Dosage: 1 KEER PER DAG 1 STUK(S)
     Route: 048
  4. METFORMINE                         /00082702/ [Concomitant]
     Active Substance: METFORMIN HYDROCHLORIDE
     Dosage: 1 KEER PER DAG 1 STUK(S)
     Route: 048
  5. HALOPERIDOL. [Interacting]
     Active Substance: HALOPERIDOL
     Indication: DEMENTIA
  6. PRAVASTATINE                       /00880402/ [Concomitant]
     Active Substance: PRAVASTATIN SODIUM
     Dosage: 1 KEER PER DAG 1 STUK(S)
     Route: 048
  7. OMEPRAZOL                          /00661201/ [Concomitant]
     Active Substance: OMEPRAZOLE
     Dosage: 1 KEER PER DAG 1 STUK(S)
     Route: 048
  8. PERSANTIN [Concomitant]
     Active Substance: DIPYRIDAMOLE
     Dosage: 2 KEER PER DAG 1 STUK(S)
     Route: 048
  9. HALOPERIDOL. [Interacting]
     Active Substance: HALOPERIDOL
     Indication: RESTLESSNESS
     Dosage: 2 KEER PER DAG 1 STUK(S)
     Route: 048
     Dates: start: 2015
  10. LORAZEPAM. [Suspect]
     Active Substance: LORAZEPAM
     Indication: INSOMNIA
     Dosage: 1 KEER PER DAG 1 STUK(S)
     Route: 048
     Dates: start: 20160321, end: 20160401

REACTIONS (2)
  - Depressed level of consciousness [Recovered/Resolved]
  - Drug interaction [Recovered/Resolved]

NARRATIVE: CASE EVENT DATE: 20160401
